FAERS Safety Report 23229465 (Version 1)
Quarter: 2023Q4

REPORT INFORMATION
  Report Type: Spontaneous
  Country: US (occurrence: US)
  Receive Date: 20231127
  Receipt Date: 20231127
  Transmission Date: 20240109
  Serious: Yes (Hospitalization, Other)
  Sender: FDA-Public Use
  Company Number: US-Axellia-004966

PATIENT
  Age: 73 Year
  Sex: Male

DRUGS (8)
  1. DAPTOMYCIN [Suspect]
     Active Substance: DAPTOMYCIN
     Indication: Staphylococcal infection
     Route: 042
  2. ELIQUIS [Concomitant]
     Active Substance: APIXABAN
  3. GABAPENTIN [Concomitant]
     Active Substance: GABAPENTIN
  4. LISINOPRIL [Concomitant]
     Active Substance: LISINOPRIL
  5. FERROUS SULFATE [Concomitant]
     Active Substance: FERROUS SULFATE
  6. FUROSEMIDE [Concomitant]
     Active Substance: FUROSEMIDE
  7. TAMSULOSIN [Concomitant]
     Active Substance: TAMSULOSIN
  8. MELATONIN [Concomitant]
     Active Substance: MELATONIN

REACTIONS (3)
  - Acute hepatic failure [Recovered/Resolved]
  - Drug-induced liver injury [Recovered/Resolved]
  - Encephalopathy [Unknown]
